FAERS Safety Report 7897196-6 (Version None)
Quarter: 2011Q4

REPORT INFORMATION
  Report Type: 
  Country: None (occurrence: None)
  Receive Date: 20111107
  Receipt Date: 20110303
  Transmission Date: 20120403
  Serious: No
  Sender: FDA-Public Use
  Company Number: US-BAYER-2011-010898

PATIENT
  Age: 56 Year
  Sex: Male

DRUGS (5)
  1. NEXAVAR [Suspect]
     Dosage: 400 MG, BID
     Route: 048
     Dates: start: 20110101
  2. HYPNOTICS AND SEDATIVES [Concomitant]
     Route: 048
  3. PROZAC [Concomitant]
     Indication: DEPRESSION
  4. NEXAVAR [Suspect]
     Indication: HEPATIC NEOPLASM MALIGNANT
     Dosage: 200 MG, BID
     Route: 048
     Dates: start: 20110112, end: 20110101
  5. XANAX [Concomitant]
     Route: 048

REACTIONS (5)
  - FATIGUE [None]
  - ASTHENIA [None]
  - SOMNOLENCE [None]
  - CONFUSIONAL STATE [None]
  - NAUSEA [None]
